FAERS Safety Report 9969864 (Version 1)
Quarter: 2014Q1

REPORT INFORMATION
  Report Type: Spontaneous
  Country: US (occurrence: None)
  Receive Date: 20140305
  Receipt Date: 20140305
  Transmission Date: 20141002
  Serious: Yes (Other)
  Sender: FDA-Public Use
  Company Number: None

PATIENT
  Sex: Female

DRUGS (2)
  1. ZOMETA [Suspect]
     Indication: PLASMA CELL MYELOMA
     Dosage: NOT PROVIDED
  2. VELCADE MILLENNIUM [Suspect]
     Indication: PLASMA CELL MYELOMA
     Dosage: NOT PROVIDED

REACTIONS (1)
  - Blood sodium decreased [None]
